FAERS Safety Report 24924096 (Version 2)
Quarter: 2025Q1

REPORT INFORMATION
  Report Type: Spontaneous
  Country: US (occurrence: US)
  Receive Date: 20250204
  Receipt Date: 20250224
  Transmission Date: 20250409
  Serious: Yes (Other)
  Sender: BRISTOL-MYERS SQUIBB COMPANY
  Company Number: US-BRISTOL-MYERS SQUIBB COMPANY-2025-011469

PATIENT
  Age: 2 Year
  Sex: Female

DRUGS (12)
  1. THALIDOMIDE [Suspect]
     Active Substance: THALIDOMIDE
     Indication: Astrocytoma
     Route: 048
     Dates: start: 20240802, end: 20250122
  2. THALIDOMIDE [Suspect]
     Active Substance: THALIDOMIDE
     Indication: Brain neoplasm
     Route: 048
     Dates: start: 20240726, end: 20250122
  3. CLONAZEPAM [Concomitant]
     Active Substance: CLONAZEPAM
  4. CYCLOPHOSPHAMIDE [Concomitant]
     Active Substance: CYCLOPHOSPHAMIDE
  5. ETOPOSIDE [Concomitant]
     Active Substance: ETOPOSIDE
  6. FENOFIBRATE [Concomitant]
     Active Substance: FENOFIBRATE
  7. CELECOXIB [Concomitant]
     Active Substance: CELECOXIB
  8. VEPESID [Concomitant]
     Active Substance: ETOPOSIDE
     Indication: Product used for unknown indication
  9. VITAMIN D3 [Concomitant]
     Active Substance: CHOLECALCIFEROL
     Indication: Product used for unknown indication
  10. TYLENOL [Concomitant]
     Active Substance: ACETAMINOPHEN
     Indication: Product used for unknown indication
  11. ACETAMINOPHEN [Concomitant]
     Active Substance: ACETAMINOPHEN
     Indication: Product used for unknown indication
  12. ZOFRAN [Concomitant]
     Active Substance: ONDANSETRON HYDROCHLORIDE
     Indication: Product used for unknown indication

REACTIONS (3)
  - Drug ineffective for unapproved indication [Unknown]
  - Metastasis [Unknown]
  - Malignant neoplasm progression [Unknown]

NARRATIVE: CASE EVENT DATE: 20250123
